FAERS Safety Report 15820121 (Version 2)
Quarter: 2019Q1

REPORT INFORMATION
  Report Type: Spontaneous
  Country: PT (occurrence: PT)
  Receive Date: 20190114
  Receipt Date: 20190122
  Transmission Date: 20190417
  Serious: Yes (Hospitalization, Other)
  Sender: FDA-Public Use
  Company Number: PHHY2019PT004323

PATIENT
  Age: 54 Year
  Sex: Female

DRUGS (1)
  1. AMOXICILLIN TRIHYDRATE +POTASSIUM CLAVULANATE [Suspect]
     Active Substance: AMOXICILLIN\CLAVULANATE POTASSIUM
     Indication: PNEUMONIA
     Dosage: UNK
     Route: 065

REACTIONS (6)
  - Hepatic function abnormal [Unknown]
  - Renal impairment [Unknown]
  - Nervous system disorder [Unknown]
  - Disseminated intravascular coagulation [Unknown]
  - Septic shock [Unknown]
  - Purpura fulminans [Unknown]
